FAERS Safety Report 14468216 (Version 2)
Quarter: 2018Q1

REPORT INFORMATION
  Report Type: Spontaneous
  Country: US (occurrence: US)
  Receive Date: 20180131
  Receipt Date: 20180213
  Transmission Date: 20180509
  Serious: Yes (Disabling, Other)
  Sender: FDA-Public Use
  Company Number: US-ACORDA-ACO_146320_2018

PATIENT
  Sex: Male

DRUGS (2)
  1. AMPYRA [Interacting]
     Active Substance: DALFAMPRIDINE
     Dosage: 10 MG, BID
     Route: 048
     Dates: start: 201709
  2. AMPYRA [Suspect]
     Active Substance: DALFAMPRIDINE
     Indication: MULTIPLE SCLEROSIS
     Dosage: 10 MG, BID
     Route: 048

REACTIONS (4)
  - Hypokinesia [Recovering/Resolving]
  - Therapy cessation [Recovered/Resolved]
  - Gait inability [Recovering/Resolving]
  - Therapeutic response unexpected [Unknown]
